FAERS Safety Report 5162520-4 (Version None)
Quarter: 2006Q4

REPORT INFORMATION
  Report Type: 
  Country: None (occurrence: None)
  Receive Date: 20061201
  Receipt Date: 20050714
  Transmission Date: 20070319
  Serious: Yes (Hospitalization)
  Sender: FDA-Public Use
  Company Number: US-BAYER-200511415BWH

PATIENT
  Age: 79 Year
  Sex: Female
  Weight: 81 kg

DRUGS (19)
  1. SORAFENIB [Suspect]
     Indication: METASTATIC MALIGNANT MELANOMA
     Dosage: TOTAL DAILY DOSE: 400 MG  UNIT DOSE: 200 MG
     Route: 048
     Dates: start: 20050713, end: 20050822
  2. DACARBAZINE [Suspect]
     Dosage: TOTAL DAILY DOSE: 1372 MG
     Route: 042
     Dates: start: 20050713, end: 20050803
  3. ANZEMET [Concomitant]
     Indication: NAUSEA
     Dosage: AS USED: 100 MG
     Route: 042
     Dates: start: 20050713, end: 20050713
  4. ANZEMET [Concomitant]
     Dosage: AS USED: 100 MG
     Route: 048
     Dates: start: 20050713, end: 20050713
  5. ATIVAN [Concomitant]
     Indication: NAUSEA
     Route: 042
     Dates: start: 20050713, end: 20050713
  6. ATIVAN [Concomitant]
     Route: 048
     Dates: start: 20050831
  7. ATIVAN [Concomitant]
     Route: 048
     Dates: start: 20050713, end: 20050713
  8. COMPAZINE [Concomitant]
     Indication: NAUSEA
     Route: 048
     Dates: start: 20050713, end: 20050713
  9. COMPAZINE [Concomitant]
     Route: 048
     Dates: start: 20050831
  10. ZOFRAN [Concomitant]
     Indication: NAUSEA
     Route: 048
     Dates: start: 20050713, end: 20050713
  11. ZESTRIL [Concomitant]
     Indication: HYPERTENSION
     Route: 048
     Dates: start: 20050713
  12. FOLIC ACID [Concomitant]
     Route: 048
  13. CENTRUM [Concomitant]
     Route: 048
  14. GLUCOSAMINE [Concomitant]
     Indication: ARTHRITIS
     Dates: start: 20050831, end: 20050831
  15. FLAX SEED OIL [Concomitant]
     Indication: VITAMIN SUPPLEMENTATION
     Route: 048
     Dates: start: 20050323, end: 20050831
  16. TYLENOL [Concomitant]
     Indication: ARTHRALGIA
     Route: 048
     Dates: start: 20050831
  17. TYLENOL [Concomitant]
     Route: 048
  18. VITAMIN CAP [Concomitant]
     Indication: VITAMIN SUPPLEMENTATION
     Route: 048
     Dates: start: 20050323
  19. LISINOPRIL [Concomitant]
     Indication: HYPERTENSION
     Route: 048
     Dates: start: 20050831

REACTIONS (4)
  - NAUSEA [None]
  - ORTHOSTATIC HYPOTENSION [None]
  - SUBARACHNOID HAEMORRHAGE [None]
  - VOMITING [None]
